FAERS Safety Report 8291751-X (Version None)
Quarter: 2012Q2

REPORT INFORMATION
  Report Type: 
  Country: None (occurrence: None)
  Receive Date: 20120417
  Receipt Date: 20120201
  Transmission Date: 20120825
  Serious: No
  Sender: FDA-Public Use
  Company Number: US-ASTRAZENECA-2011SE75949

PATIENT
  Age: 21083 Day
  Sex: Female
  Weight: 68.8 kg

DRUGS (7)
  1. BACTRIM [Concomitant]
     Dosage: 800-160 MG TABS, 1 BY MOUTH TWICE A DAY X 7 DAYS
     Route: 048
     Dates: start: 20110817
  2. METFORMIN HCL [Concomitant]
     Dosage: 1 TABLET DAILY IN AM
     Dates: start: 20110712
  3. FLONASE [Concomitant]
     Dosage: 50 UG, 1 INH IN EACH NOSTRIL 1X DAY
     Dates: start: 20110712
  4. ATENOLOL AND CHLORTHALIDONE [Suspect]
     Dosage: 50-25 MG TABS
     Dates: start: 20110712
  5. CRESTOR [Suspect]
     Route: 048
     Dates: start: 20110712
  6. ACIPHEX TBEC [Concomitant]
     Dates: start: 20110817
  7. NEXIUM [Suspect]
     Route: 048

REACTIONS (18)
  - HYPERTENSION [None]
  - SINUS HEADACHE [None]
  - HEADACHE [None]
  - NERVE COMPRESSION [None]
  - TENDERNESS [None]
  - ABDOMINAL PAIN UPPER [None]
  - ACCIDENT AT WORK [None]
  - ASTHMA [None]
  - CERVICAL ROOT PAIN [None]
  - TYPE 2 DIABETES MELLITUS [None]
  - HYPERCHOLESTEROLAEMIA [None]
  - RHINITIS ALLERGIC [None]
  - ACUTE SINUSITIS [None]
  - DIZZINESS [None]
  - MALAISE [None]
  - DIARRHOEA [None]
  - GASTROOESOPHAGEAL REFLUX DISEASE [None]
  - JOINT RANGE OF MOTION DECREASED [None]
